FAERS Safety Report 7038765-5 (Version None)
Quarter: 2010Q4

REPORT INFORMATION
  Report Type: 
  Country: None (occurrence: None)
  Receive Date: 20101012
  Receipt Date: 20101001
  Transmission Date: 20110411
  Serious: Yes (Hospitalization)
  Sender: FDA-Public Use
  Company Number: US-BIOGENIDEC-2010BI010748

PATIENT
  Age: 30 Year
  Sex: Female
  Weight: 83 kg

DRUGS (1)
  1. TYSABRI [Suspect]
     Indication: MULTIPLE SCLEROSIS
     Route: 042
     Dates: start: 20090109, end: 20100702

REACTIONS (4)
  - ASTHENIA [None]
  - OROPHARYNGEAL PAIN [None]
  - PYREXIA [None]
  - URINARY TRACT INFECTION [None]
